FAERS Safety Report 12926869 (Version 1)
Quarter: 2016Q4

REPORT INFORMATION
  Report Type: Spontaneous
  Country: CA (occurrence: CA)
  Receive Date: 20161108
  Receipt Date: 20161108
  Transmission Date: 20170207
  Serious: Yes (Hospitalization, Other)
  Sender: FDA-Public Use
  Company Number: CA-ABBVIE-16K-028-1771098-00

PATIENT
  Sex: Female

DRUGS (10)
  1. NAPROSYN [Concomitant]
     Active Substance: NAPROXEN
     Indication: RHEUMATOID ARTHRITIS
  2. HUMIRA [Suspect]
     Active Substance: ADALIMUMAB
     Indication: RHEUMATOID ARTHRITIS
     Route: 058
  3. ENBREL [Concomitant]
     Active Substance: ETANERCEPT
     Indication: RHEUMATOID ARTHRITIS
  4. SULFAMETHOXAZOLE/TRIMETHOPRIM [Concomitant]
     Active Substance: SULFAMETHOXAZOLE\TRIMETHOPRIM
     Indication: RHEUMATOID ARTHRITIS
  5. HYDROXYCHLOROQUINE [Concomitant]
     Active Substance: HYDROXYCHLOROQUINE
     Indication: RHEUMATOID ARTHRITIS
  6. METHOTREXATE. [Concomitant]
     Active Substance: METHOTREXATE
     Indication: RHEUMATOID ARTHRITIS
  7. ACETYLSALICYLIC ACID [Concomitant]
     Active Substance: ASPIRIN
     Indication: RHEUMATOID ARTHRITIS
  8. ARAVA [Concomitant]
     Active Substance: LEFLUNOMIDE
     Indication: RHEUMATOID ARTHRITIS
  9. DICLOFENAC [Concomitant]
     Active Substance: DICLOFENAC
     Indication: RHEUMATOID ARTHRITIS
  10. MOTRIN [Concomitant]
     Active Substance: IBUPROFEN
     Indication: RHEUMATOID ARTHRITIS

REACTIONS (10)
  - Weight decreased [Unknown]
  - Deafness [Unknown]
  - Vomiting [Unknown]
  - Pharyngitis [Unknown]
  - Decreased appetite [Unknown]
  - Nausea [Unknown]
  - Dizziness [Unknown]
  - Headache [Unknown]
  - Abdominal discomfort [Unknown]
  - Ear infection [Unknown]
